FAERS Safety Report 5625933-X (Version None)
Quarter: 2008Q1

REPORT INFORMATION
  Report Type: 
  Country: None (occurrence: None)
  Receive Date: 20080212
  Receipt Date: 20080212
  Transmission Date: 20080703
  Serious: Yes (Other)
  Sender: FDA-Public Use
  Company Number: None

PATIENT
  Age: 45 Year
  Sex: Female
  Weight: 64.4108 kg

DRUGS (1)
  1. YAZ [Suspect]
     Indication: MENORRHAGIA
     Dosage: 1 PILL DAILY PO
     Route: 048
     Dates: start: 20080120, end: 20080205

REACTIONS (2)
  - DRUG HYPERSENSITIVITY [None]
  - FEAR [None]
